FAERS Safety Report 10663978 (Version 1)
Quarter: 2014Q4

REPORT INFORMATION
  Report Type: Report from Study
  Country: US (occurrence: US)
  Receive Date: 20141219
  Receipt Date: 20141219
  Transmission Date: 20150529
  Serious: Yes (Other)
  Sender: FDA-Public Use
  Company Number: US-BAYER-2014-183046

PATIENT
  Age: 14 Month
  Sex: Female

DRUGS (1)
  1. ADEMPAS [Suspect]
     Active Substance: RIOCIGUAT
     Dosage: 5 TABLETS (? 1MG)
     Route: 048
     Dates: start: 20141207

REACTIONS (3)
  - Accidental exposure to product by child [None]
  - Crying [None]
  - Heart rate increased [None]

NARRATIVE: CASE EVENT DATE: 20141207
